FAERS Safety Report 5207011-7 (Version None)
Quarter: 2007Q1

REPORT INFORMATION
  Report Type: 
  Country: None (occurrence: None)
  Receive Date: 20070112
  Receipt Date: 20070108
  Transmission Date: 20070707
  Serious: Yes (Hospitalization, Other)
  Sender: FDA-Public Use
  Company Number: CA-BAYER-200612155GDS

PATIENT
  Age: 76 Year
  Sex: Male
  Weight: 59 kg

DRUGS (10)
  1. SORAFENIB [Suspect]
     Indication: HEPATIC NEOPLASM MALIGNANT
     Route: 048
     Dates: start: 20060216, end: 20060516
  2. ALTACE [Concomitant]
     Indication: HYPERTENSION
     Route: 048
     Dates: start: 20000101
  3. APO-DILTIAZEM [Concomitant]
     Indication: HYPERTENSION
     Route: 048
     Dates: start: 20010101
  4. APO-FUROSEMIDE [Concomitant]
     Indication: HYPERTENSION
     Route: 048
     Dates: start: 20040101
  5. GLYBURIDE [Concomitant]
     Indication: DIABETES MELLITUS
     Route: 048
     Dates: start: 20020101
  6. APO-PRAVASTATIN [Concomitant]
     Indication: CORONARY ARTERY DISEASE
     Route: 048
     Dates: start: 20020101
  7. ADVAIR DISKUS 250/50 [Concomitant]
     Indication: ASTHMA
     Route: 055
     Dates: start: 20050101
  8. SPIRIVA [Concomitant]
     Indication: ASTHMA
     Route: 055
     Dates: start: 20030101
  9. ASPIRIN [Concomitant]
     Indication: CORONARY ARTERY DISEASE
     Route: 048
     Dates: start: 20010101
  10. HYDROXYZINE HCL [Concomitant]
     Indication: PRURITUS
     Route: 048
     Dates: start: 20051201

REACTIONS (1)
  - HYPOGLYCAEMIA [None]
